FAERS Safety Report 7922483 (Version 3)
Quarter: 2013Q4

REPORT INFORMATION
  Report Type: Spontaneous
  Country: US (occurrence: US)
  Receive Date: 20110429
  Receipt Date: 20131129
  Transmission Date: 20140711
  Serious: No
  Sender: FDA-Public Use
  Company Number: US-ASTRAZENECA-2011SE01038

PATIENT
  Age: 74 Year
  Sex: Female
  Weight: 88.5 kg

DRUGS (11)
  1. NEXIUM [Suspect]
     Indication: GASTROOESOPHAGEAL REFLUX DISEASE
     Route: 048
  2. NEXIUM [Suspect]
     Indication: HIATUS HERNIA
     Route: 048
  3. NEXIUM [Suspect]
     Indication: GASTROOESOPHAGEAL REFLUX DISEASE
     Dosage: GENERIC FROM INDIA
     Route: 048
  4. NEXIUM [Suspect]
     Indication: HIATUS HERNIA
     Dosage: GENERIC FROM INDIA
     Route: 048
  5. NEXIUM [Suspect]
     Indication: GASTROOESOPHAGEAL REFLUX DISEASE
     Dosage: GENERIC FROM CANADA
     Route: 048
  6. NEXIUM [Suspect]
     Indication: HIATUS HERNIA
     Dosage: GENERIC FROM CANADA
     Route: 048
  7. FISH OIL OMEGA 3 [Concomitant]
     Indication: BLOOD CHOLESTEROL ABNORMAL
  8. LEVOTHYROXINE [Concomitant]
     Indication: THYROID DISORDER
  9. ASPIRIN [Concomitant]
     Indication: BLOOD CHOLESTEROL ABNORMAL
  10. MOTRIN [Concomitant]
     Indication: BACK PAIN
  11. PEPCID [Concomitant]

REACTIONS (9)
  - Gastrooesophageal reflux disease [Unknown]
  - Choking [Unknown]
  - Regurgitation [Unknown]
  - Dyspnoea [Unknown]
  - Insomnia [Unknown]
  - Rash [Unknown]
  - Alopecia [Unknown]
  - Intentional drug misuse [Not Recovered/Not Resolved]
  - Drug dose omission [Not Recovered/Not Resolved]
